FAERS Safety Report 4994965-7 (Version None)
Quarter: 2006Q2

REPORT INFORMATION
  Report Type: 
  Country: None (occurrence: None)
  Receive Date: 20060501
  Receipt Date: 20060414
  Transmission Date: 20061013
  Serious: Yes (Other)
  Sender: FDA-Public Use
  Company Number: 2006BH008385

PATIENT
  Sex: Male

DRUGS (2)
  1. HEMOFIL [Suspect]
     Indication: FACTOR VIII DEFICIENCY
  2. FACTOR VIII (ANTIHAEMOPHILIC FACTOR) (FACTOR VIII (ANTIHAEMOPHILIC FAC [Suspect]
     Indication: FACTOR VIII DEFICIENCY
     Dates: start: 19840101

REACTIONS (3)
  - HEPATITIS B [None]
  - HEPATITIS C [None]
  - HIV INFECTION [None]
